FAERS Safety Report 10424214 (Version 3)
Quarter: 2014Q4

REPORT INFORMATION
  Report Type: Spontaneous
  Country: US (occurrence: US)
  Receive Date: 20140902
  Receipt Date: 20141013
  Transmission Date: 20150528
  Serious: Yes (Hospitalization, Other)
  Sender: FDA-Public Use
  Company Number: US-RB PHARMACEUTICALS LIMITED-RB-65902-2014

PATIENT
  Age: 0 Year
  Sex: Male
  Weight: 1.81 kg

DRUGS (8)
  1. PRENATAL VITAMIN [Suspect]
     Active Substance: VITAMINS
     Indication: NUTRITIONAL SUPPLEMENTATION
     Dosage: TAKING 1 TABLET DAILY
     Route: 064
     Dates: start: 201310, end: 20140310
  2. CLINDAMYCIN [Suspect]
     Active Substance: CLINDAMYCIN\CLINDAMYCIN PHOSPHATE
     Indication: MASTITIS
     Dosage: UNSPECIFIED DOSE 3 TIMES DAILY
     Route: 063
     Dates: start: 2014, end: 201405
  3. IBUPROFEN. [Suspect]
     Active Substance: IBUPROFEN
     Indication: MASTITIS
     Dosage: MATERNAL DOSING DETAILS UNKNOWN
     Route: 063
     Dates: start: 2014
  4. SUBUTEX [Suspect]
     Active Substance: BUPRENORPHINE HYDROCHLORIDE
     Dosage: UNK
     Route: 063
  5. SUBOXONE [Suspect]
     Active Substance: BUPRENORPHINE HYDROCHLORIDE\NALOXONE HYDROCHLORIDE
     Indication: DRUG DEPENDENCE
     Dosage: 16 MG, DAILY
     Route: 064
     Dates: start: 2013, end: 201309
  6. SUBUTEX [Suspect]
     Active Substance: BUPRENORPHINE HYDROCHLORIDE
     Indication: DRUG DEPENDENCE
     Dosage: UNK
     Route: 064
  7. PRENATAL VITAMIN [Suspect]
     Active Substance: VITAMINS
     Dosage: TAKING 1 TABLET DAILY
     Route: 063
     Dates: start: 20140310
  8. CEPHALEXIN. [Suspect]
     Active Substance: CEPHALEXIN
     Indication: MASTITIS
     Dosage: UNSPECIFIED DOSE 3 TIMES DAILY
     Route: 063
     Dates: start: 2014, end: 201405

REACTIONS (9)
  - Premature baby [Recovered/Resolved]
  - Breech presentation [None]
  - Caesarean section [None]
  - Foetal exposure during pregnancy [None]
  - Foetal exposure during pregnancy [Recovered/Resolved]
  - Low birth weight baby [Recovered/Resolved]
  - Feeding disorder neonatal [Recovered/Resolved]
  - Respiratory disorder neonatal [Recovered/Resolved]
  - Exposure during breast feeding [Not Recovered/Not Resolved]

NARRATIVE: CASE EVENT DATE: 2013
